FAERS Safety Report 23584331 (Version 1)
Quarter: 2024Q1

REPORT INFORMATION
  Report Type: Spontaneous
  Country: DE (occurrence: DE)
  Receive Date: 20240301
  Receipt Date: 20240301
  Transmission Date: 20240410
  Serious: Yes (Hospitalization, Other)
  Sender: FDA-Public Use
  Company Number: DE-DEXPHARM-20240236

PATIENT
  Age: 95 Year
  Sex: Female

DRUGS (8)
  1. MIRTAZAPINE [Suspect]
     Active Substance: MIRTAZAPINE
     Indication: Product used for unknown indication
     Dosage: 15 MILLIGRAM, ONCE A DAY(0-0-0-1)
  2. PIPAMPERONE [Suspect]
     Active Substance: PIPAMPERONE
     Indication: Product used for unknown indication
     Dosage: 20 MILLIGRAM, AS NECESSARY( ON DEMAND)
     Route: 065
  3. RISPERIDONE [Suspect]
     Active Substance: RISPERIDONE
     Indication: Product used for unknown indication
     Dosage: 0.25 MILLIGRAM, ONCE A DAY(0-0-0-1)
     Route: 065
  4. TORSEMIDE [Suspect]
     Active Substance: TORSEMIDE
     Indication: Product used for unknown indication
     Dosage: 20 MILLIGRAM, ONCE A DAY(1-0-1-0)
     Route: 065
  5. METOPROLOL [Concomitant]
     Active Substance: METOPROLOL
     Indication: Product used for unknown indication
     Dosage: 50 MILLIGRAM, ONCE A DAY (1-0-0-0 )
     Route: 065
  6. SIMVASTATIN [Concomitant]
     Active Substance: SIMVASTATIN
     Indication: Product used for unknown indication
     Dosage: 20 MILLIGRAM, ONCE A DAY( 0-0-1-0)
     Route: 065
  7. RIVAROXABAN [Concomitant]
     Active Substance: RIVAROXABAN
     Indication: Product used for unknown indication
     Dosage: 15 MILLIGRAM, ONCE A DAY (1-0-0-0)
     Route: 065
  8. CAPTOPRIL [Concomitant]
     Active Substance: CAPTOPRIL
     Indication: Product used for unknown indication
     Dosage: 50 MILLIGRAM, ONCE A DAY( 1-0-0-0)
     Route: 065

REACTIONS (4)
  - Delirium [Unknown]
  - Dehydration [Unknown]
  - Blood electrolytes decreased [Unknown]
  - Labelled drug-drug interaction issue [Unknown]
